FAERS Safety Report 12573407 (Version 1)
Quarter: 2016Q3

REPORT INFORMATION
  Report Type: Report from Study
  Country: ES (occurrence: ES)
  Receive Date: 20160720
  Receipt Date: 20160720
  Transmission Date: 20161109
  Serious: Yes (Other)
  Sender: FDA-Public Use
  Company Number: ES-ROCHE-1797225

PATIENT

DRUGS (2)
  1. 5-FLUOROURACIL [Suspect]
     Active Substance: FLUOROURACIL
     Indication: RECTAL ADENOCARCINOMA
     Dosage: 300 MG/M2 A DAY, 5 DAYS A WEEK FOR 5 WEEKS
     Route: 042
  2. CAPECITABINE. [Suspect]
     Active Substance: CAPECITABINE
     Indication: RECTAL ADENOCARCINOMA
     Route: 048

REACTIONS (13)
  - Renal failure [Unknown]
  - Decreased appetite [Unknown]
  - Mucosal inflammation [Unknown]
  - Abdominal pain [Unknown]
  - Cystitis [Unknown]
  - Rectal haemorrhage [Unknown]
  - Asthenia [Unknown]
  - Vomiting [Unknown]
  - Thrombocytopenia [Unknown]
  - Diarrhoea [Unknown]
  - Proctalgia [Unknown]
  - Proctitis [Unknown]
  - Dermatitis [Unknown]
